FAERS Safety Report 6629819-3 (Version None)
Quarter: 2010Q1

REPORT INFORMATION
  Report Type: 
  Country: None (occurrence: None)
  Receive Date: 20100310
  Receipt Date: 20100310
  Transmission Date: 20100710
  Serious: No
  Sender: FDA-Public Use
  Company Number: None

PATIENT
  Age: 47 Year
  Sex: Female
  Weight: 59.8748 kg

DRUGS (3)
  1. COPAXONE [Suspect]
     Indication: MULTIPLE SCLEROSIS
     Dosage: 1 EVERY OTHER DAY SUBCUTANE
     Route: 058
     Dates: start: 20030101, end: 20040101
  2. ZOLOFT [Concomitant]
  3. PROVIGIL [Concomitant]

REACTIONS (3)
  - INJECTION SITE NECROSIS [None]
  - INJECTION SITE REACTION [None]
  - SKIN DISORDER [None]
